FAERS Safety Report 8899779 (Version 1)
Quarter: 2012Q4

REPORT INFORMATION
  Report Type: 
  Country: US (occurrence: US)
  Receive Date: 20121108
  Receipt Date: 20121108
  Transmission Date: 20130627
  Serious: No
  Sender: FDA-Public Use
  Company Number: US-AMGEN-USASP2012026309

PATIENT
  Age: 38 Year
  Sex: Female
  Weight: 87.53 kg

DRUGS (13)
  1. ENBREL [Suspect]
     Indication: RHEUMATOID ARTHRITIS
     Dosage: 25 mg, 2 times/wk
     Route: 058
  2. EFFEXOR XR [Concomitant]
     Dosage: 150 mg, UNK
  3. FLECAINIDE [Concomitant]
     Dosage: 100 mg, UNK
  4. METHOTREXATE [Concomitant]
     Dosage: 2.5 mg, UNK
  5. FENOFIBRATE [Concomitant]
     Dosage: 134 mg, UNK
  6. LIDEX [Concomitant]
     Dosage: UNK
  7. VITAMIN D3 [Concomitant]
     Dosage: 5000 IU, UNK
  8. VITAMIN B [Concomitant]
     Dosage: UNK
  9. ALEVE [Concomitant]
     Dosage: 220 mg, UNK
  10. MULTI TABS CLASSIC [Concomitant]
     Dosage: UNK
  11. CALCIUM + VITAMIN D [Concomitant]
     Dosage: UNK
  12. FOLIC ACID [Concomitant]
     Dosage: UNK
  13. BABY ASPIRIN [Concomitant]
     Dosage: 81 mg, UNK

REACTIONS (3)
  - Oral herpes [Unknown]
  - Injection site reaction [Unknown]
  - Injection site bruising [Unknown]
